FAERS Safety Report 18503198 (Version 2)
Quarter: 2020Q4

REPORT INFORMATION
  Report Type: Report from Study
  Country: None (occurrence: CO)
  Receive Date: 20201114
  Receipt Date: 20201203
  Transmission Date: 20210114
  Serious: Yes (Hospitalization, Other)
  Sender: FDA-Public Use
  Company Number: CO-ABBVIE-20K-036-3295834-00

PATIENT
  Age: 35 Year
  Sex: Female
  Weight: 53 kg

DRUGS (2)
  1. ZEMPLAR [Suspect]
     Active Substance: PARICALCITOL
     Indication: HYPERPARATHYROIDISM SECONDARY
     Route: 048
     Dates: start: 20190506, end: 20200223
  2. ZEMPLAR [Suspect]
     Active Substance: PARICALCITOL
     Indication: CHRONIC KIDNEY DISEASE
     Route: 048
     Dates: start: 2020, end: 20200814

REACTIONS (12)
  - Flatulence [Unknown]
  - Vomiting [Unknown]
  - Blood creatinine increased [Recovering/Resolving]
  - Diarrhoea [Not Recovered/Not Resolved]
  - Bacterial infection [Recovering/Resolving]
  - Diarrhoea [Recovered/Resolved]
  - Kidney transplant rejection [Recovering/Resolving]
  - Abdominal pain upper [Recovering/Resolving]
  - Gastroenteritis [Recovered/Resolved]
  - Pain [Recovering/Resolving]
  - Weight decreased [Recovering/Resolving]
  - Decreased appetite [Unknown]

NARRATIVE: CASE EVENT DATE: 2020
